FAERS Safety Report 18252006 (Version 4)
Quarter: 2020Q4

REPORT INFORMATION
  Report Type: Spontaneous
  Country: US (occurrence: US)
  Receive Date: 20200910
  Receipt Date: 20201116
  Transmission Date: 20210113
  Serious: Yes (Other)
  Sender: FDA-Public Use
  Company Number: US-BAYER-2020-187833

PATIENT
  Age: 50 Year
  Sex: Male

DRUGS (5)
  1. KOGENATE FS [Suspect]
     Active Substance: ANTIHEMOPHILIC FACTOR, HUMAN RECOMBINANT
     Dosage: 7000 IU, TO TREAT BLEEDING
     Route: 042
  2. KOGENATE FS [Suspect]
     Active Substance: ANTIHEMOPHILIC FACTOR, HUMAN RECOMBINANT
     Dosage: 7000 UN IV
     Route: 042
  3. KOGENATE FS [Suspect]
     Active Substance: ANTIHEMOPHILIC FACTOR, HUMAN RECOMBINANT
     Dosage: 7000 UN IV, ONCE; 1 DOSE; NOSE BLEED
     Route: 042
  4. KOGENATE FS [Suspect]
     Active Substance: ANTIHEMOPHILIC FACTOR, HUMAN RECOMBINANT
     Dosage: 3390 UN; PROPHYLAXIS
     Route: 042
  5. KOGENATE FS [Suspect]
     Active Substance: ANTIHEMOPHILIC FACTOR, HUMAN RECOMBINANT
     Dosage: 7000 UN IV ONCE; 1 DOSE; KNEE BLEED
     Route: 042

REACTIONS (6)
  - Haemarthrosis [None]
  - Epistaxis [None]
  - Haemarthrosis [None]
  - Epistaxis [Not Recovered/Not Resolved]
  - Haemorrhage [None]
  - Catheter placement [None]

NARRATIVE: CASE EVENT DATE: 20200801
